FAERS Safety Report 17082060 (Version 2)
Quarter: 2019Q4

REPORT INFORMATION
  Report Type: Spontaneous
  Country: AT (occurrence: AT)
  Receive Date: 20191127
  Receipt Date: 20191227
  Transmission Date: 20200122
  Serious: Yes (Other)
  Sender: FDA-Public Use
  Company Number: AT-JNJFOC-20191131728

PATIENT
  Age: 68 Year
  Sex: Male

DRUGS (15)
  1. FLIXOTIDE [Concomitant]
     Active Substance: FLUTICASONE PROPIONATE
     Dosage: 125  G, BID
     Route: 055
     Dates: start: 20191114, end: 20191115
  2. PROFENID [Concomitant]
     Active Substance: KETOPROFEN
     Dosage: 2 DF
     Route: 042
     Dates: start: 20191114, end: 20191115
  3. RAMIPRIL. [Concomitant]
     Active Substance: RAMIPRIL
     Dosage: 10 MG, QD
     Dates: start: 20191114, end: 20191115
  4. FUROHEXAL [Concomitant]
     Dosage: 40MG HALF TABLET DAILY
     Dates: start: 20191114, end: 20191115
  5. CEFUROXIME. [Concomitant]
     Active Substance: CEFUROXIME
     Indication: PREOPERATIVE CARE
     Dosage: 3 G, ONCE
     Route: 042
  6. RIVAROXABAN [Suspect]
     Active Substance: RIVAROXABAN
     Indication: KNEE ARTHROPLASTY
     Dosage: 10 MG, QD
     Route: 048
     Dates: start: 20191115, end: 20191116
  7. ITERIUM [Concomitant]
     Active Substance: RILMENIDINE
     Dosage: 1 MG, QD
     Dates: start: 20191114, end: 20191115
  8. CRESTOR [Concomitant]
     Active Substance: ROSUVASTATIN CALCIUM
     Dosage: 10 MG, QD
     Dates: start: 20191114, end: 20191115
  9. RINGER LOESUNG [Concomitant]
     Dosage: 1000 UNK
  10. EUTHYROX [Concomitant]
     Active Substance: LEVOTHYROXINE SODIUM
     Dosage: 75  G, QD
     Dates: start: 20191114, end: 20191115
  11. BISOPROLOL [Concomitant]
     Active Substance: BISOPROLOL
     Dosage: 5MG, HALF TABLET DAILY
     Dates: start: 20191114, end: 20191115
  12. METOCLOPRAMIDE. [Concomitant]
     Active Substance: METOCLOPRAMIDE
     Dosage: 2 DF
     Route: 042
     Dates: start: 20191114, end: 20191115
  13. AMLODIPINE [Concomitant]
     Active Substance: AMLODIPINE BESYLATE
     Dosage: 5MG, HALF TABLET DAILY
     Dates: start: 20191114, end: 20191115
  14. SPIRIVA [Concomitant]
     Active Substance: TIOTROPIUM BROMIDE MONOHYDRATE
     Dosage: 18  G, QD
     Dates: start: 20191114, end: 20191115
  15. ULSAL [Concomitant]
     Active Substance: RANITIDINE HYDROCHLORIDE
     Dosage: 1 DF
     Route: 042
     Dates: start: 20191114, end: 20191115

REACTIONS (1)
  - Pulmonary embolism [Recovering/Resolving]

NARRATIVE: CASE EVENT DATE: 20191116
